FAERS Safety Report 7240296-4 (Version None)
Quarter: 2011Q1

REPORT INFORMATION
  Report Type: 
  Country: None (occurrence: None)
  Receive Date: 20110124
  Receipt Date: 20110113
  Transmission Date: 20110831
  Serious: Yes (Hospitalization, Other)
  Sender: FDA-Public Use
  Company Number: PHHY2011ES02561

PATIENT
  Age: 78 Year
  Sex: Female

DRUGS (1)
  1. VOLTAREN [Suspect]
     Indication: ARTHROPATHY
     Dosage: 50 MG, TID
     Route: 048
     Dates: start: 20100313, end: 20100319

REACTIONS (2)
  - GASTROENTERITIS [None]
  - RENAL FAILURE ACUTE [None]
